FAERS Safety Report 18381650 (Version 1)
Quarter: 2020Q4

REPORT INFORMATION
  Report Type: Other
  Country: US (occurrence: US)
  Receive Date: 20201014
  Receipt Date: 20201014
  Transmission Date: 20210114
  Serious: Yes (Death, Other)
  Sender: FDA-Public Use
  Company Number: US-ROCHE-2693957

PATIENT

DRUGS (8)
  1. PREDNISONE. [Suspect]
     Active Substance: PREDNISONE
     Indication: ANTI-NEUTROPHIL CYTOPLASMIC ANTIBODY POSITIVE VASCULITIS
     Dosage: FOR 1 WEEK
     Route: 065
  2. PREDNISONE. [Suspect]
     Active Substance: PREDNISONE
     Dosage: FOR 1 WEEK. THEREAFTER, PREDNISONE WAS TAPERED BY 2.5 MG MONTHLY, STARTING AT 15 MG DAILY.
     Route: 065
  3. RITUXIMAB. [Suspect]
     Active Substance: RITUXIMAB
     Dosage: MAINTENANCE THERAPY
     Route: 041
  4. CYCLOPHOSPHAMIDE. [Suspect]
     Active Substance: CYCLOPHOSPHAMIDE
     Indication: ANTI-NEUTROPHIL CYTOPLASMIC ANTIBODY POSITIVE VASCULITIS
     Dosage: MAXIMUM 175 MG/D FOR 1 WEEK
     Route: 048
  5. PREDNISONE. [Suspect]
     Active Substance: PREDNISONE
     Dosage: FOR 1 WEEK
     Route: 065
  6. RITUXIMAB. [Suspect]
     Active Substance: RITUXIMAB
     Indication: ANTI-NEUTROPHIL CYTOPLASMIC ANTIBODY POSITIVE VASCULITIS
     Route: 041
  7. CYCLOPHOSPHAMIDE. [Suspect]
     Active Substance: CYCLOPHOSPHAMIDE
     Dosage: MAXIMUM 125 MG/D FOR 7 WEEKS.
     Route: 048
  8. PREDNISONE. [Suspect]
     Active Substance: PREDNISONE
     Dosage: FOR 1 WEEK
     Route: 065

REACTIONS (25)
  - Pneumonia [Fatal]
  - Cerebrovascular accident [Unknown]
  - Haemoptysis [Unknown]
  - Seizure [Unknown]
  - Methaemoglobinaemia [Unknown]
  - Acute respiratory distress syndrome [Fatal]
  - Myocardial infarction [Unknown]
  - Chronic myeloid leukaemia [Unknown]
  - Tracheal stenosis [Unknown]
  - Cytomegalovirus infection [Unknown]
  - Hyponatraemia [Unknown]
  - Neutropenia [Recovered/Resolved]
  - Nephrolithiasis [Unknown]
  - Fall [Unknown]
  - Gastrointestinal haemorrhage [Unknown]
  - Urinary tract infection [Unknown]
  - Gastroenteritis [Unknown]
  - Hypertension [Unknown]
  - Pulmonary embolism [Unknown]
  - Escherichia sepsis [Fatal]
  - Sudden cardiac death [Fatal]
  - Bacteraemia [Unknown]
  - Arrhythmia [Unknown]
  - Deep vein thrombosis [Unknown]
  - Renal failure [Unknown]
